FAERS Safety Report 8697970 (Version 2)
Quarter: 2012Q4

REPORT INFORMATION
  Report Type: Spontaneous
  Country: US (occurrence: None)
  Receive Date: 20120717
  Receipt Date: 20121015
  Transmission Date: 20130627
  Serious: Yes (Hospitalization, Other)
  Sender: FDA-Public Use
  Company Number: 2012P1046262

PATIENT
  Age: 80 Year
  Sex: Male
  Weight: 83.92 kg

DRUGS (10)
  1. WARFARIN SODIUM [Suspect]
     Indication: TRANSIENT ISCHAEMIC ATTACK
     Dosage: 7.5 MG, QD, PO
     Route: 048
     Dates: start: 20120201, end: 20120320
  2. WARFARIN SODIUM [Suspect]
     Indication: HYPERTENSION
     Dosage: 7.5 MG, QD, PO
     Route: 048
     Dates: start: 20120201, end: 20120320
  3. WARFARIN [Suspect]
     Indication: TRANSIENT ISCHAEMIC ATTACK
     Dosage: 2.5 MG, BIW, QD, PO
     Route: 048
     Dates: end: 201203
  4. WARFARIN [Suspect]
     Indication: HYPERTENSION
     Dosage: 2.5 MG, BIW, QD, PO
     Route: 048
     Dates: end: 201203
  5. WARFARIN [Suspect]
     Indication: TRANSIENT ISCHAEMIC ATTACK
     Dosage: 2.5 MG, BIW, QD, PO
     Route: 048
     Dates: start: 20120306, end: 20120320
  6. WARFARIN [Suspect]
     Indication: HYPERTENSION
     Dosage: 2.5 MG, BIW, QD, PO
     Route: 048
     Dates: start: 20120306, end: 20120320
  7. LIPITOR [Concomitant]
  8. LOSARTAN POTASSIUM [Concomitant]
  9. VITAMINS [Concomitant]
  10. FISH OIL [Concomitant]

REACTIONS (10)
  - Atrial fibrillation [None]
  - International normalised ratio fluctuation [None]
  - Thrombotic stroke [None]
  - Product substitution issue [None]
  - Product quality issue [None]
  - Memory impairment [None]
  - Tendon rupture [None]
  - Blood pressure increased [None]
  - Arteriosclerosis [None]
  - Ventricular extrasystoles [None]
